FAERS Safety Report 5085478-5 (Version None)
Quarter: 2006Q3

REPORT INFORMATION
  Report Type: 
  Country: None (occurrence: None)
  Receive Date: 20060817
  Receipt Date: 20060803
  Transmission Date: 20061208
  Serious: Yes (Hospitalization)
  Sender: FDA-Public Use
  Company Number: 2006096949

PATIENT
  Age: 46 Year
  Sex: Female
  Weight: 109.7705 kg

DRUGS (1)
  1. BEXTRA [Suspect]
     Indication: CONNECTIVE TISSUE DISORDER
     Dosage: (20 MG, 1 -2 TIMES)
     Dates: end: 20050101

REACTIONS (1)
  - ARTERIAL OCCLUSIVE DISEASE [None]
